FAERS Safety Report 5968883-1 (Version None)
Quarter: 2008Q4

REPORT INFORMATION
  Report Type: 
  Country: None (occurrence: None)
  Receive Date: 20081125
  Receipt Date: 20081125
  Transmission Date: 20090506
  Serious: Yes (Other)
  Sender: FDA-Public Use
  Company Number: None

PATIENT
  Age: 46 Year
  Sex: Female
  Weight: 72.5755 kg

DRUGS (2)
  1. AMOXICILLIN AND CLAVULANATE POTASSIUM [Suspect]
     Indication: RESPIRATORY DISORDER
     Dosage: 875-125 MG 1 TAB TWICE DAILY PO
     Route: 048
     Dates: start: 20080920, end: 20080926
  2. AMOXICILLIN AND CLAVULANATE POTASSIUM [Suspect]
     Indication: SINUSITIS
     Dosage: 875-125 MG 1 TAB TWICE DAILY PO
     Route: 048
     Dates: start: 20080920, end: 20080926

REACTIONS (7)
  - DISORIENTATION [None]
  - HAEMOCHROMATOSIS [None]
  - HEPATIC FAILURE [None]
  - HEPATOTOXICITY [None]
  - IMPAIRED WORK ABILITY [None]
  - SKIN ULCER [None]
  - STEATORRHOEA [None]
